FAERS Safety Report 6235490-5 (Version None)
Quarter: 2009Q2

REPORT INFORMATION
  Report Type: 
  Country: None (occurrence: None)
  Receive Date: 20090618
  Receipt Date: 20080807
  Transmission Date: 20091009
  Serious: No
  Sender: FDA-Public Use
  Company Number: US-ASTRAZENECA-2008UW10450

PATIENT
  Age: 78 Year
  Sex: Female
  Weight: 64.4 kg

DRUGS (9)
  1. RHINOCORT [Suspect]
     Indication: SINUS HEADACHE
     Dosage: 2 SPRAYS QD
     Route: 045
     Dates: start: 20080101
  2. ALTACE [Concomitant]
  3. HYDROCHLOROTHIAZIDE [Concomitant]
  4. ZYRTEC (GENERIC) [Concomitant]
  5. OMEPRAZOLE [Concomitant]
     Route: 048
  6. MULTI-VITAMIN [Concomitant]
  7. MIACALCIN [Concomitant]
     Dosage: ALTERNATING NOSTRIL QD
  8. ASMANEX TWISTHALER [Concomitant]
     Dosage: 220MCG/INH TWO PUFFS QD
  9. PROVENTIL-HFA [Concomitant]

REACTIONS (1)
  - CHEST PAIN [None]
